FAERS Safety Report 20648785 (Version 1)
Quarter: 2022Q1

REPORT INFORMATION
  Report Type: Spontaneous
  Country: FR (occurrence: FR)
  Receive Date: 20220329
  Receipt Date: 20220329
  Transmission Date: 20220423
  Serious: Yes (Hospitalization)
  Sender: FDA-Public Use
  Company Number: None

PATIENT
  Age: 83 Year
  Sex: Female
  Weight: 82 kg

DRUGS (3)
  1. LEVOFLOXACIN [Suspect]
     Active Substance: LEVOFLOXACIN
     Indication: Sepsis
     Dosage: 750 MILLIGRAM, QD
     Route: 048
     Dates: start: 20220127, end: 20220216
  2. TAZOBACTAM SODIUM [Suspect]
     Active Substance: TAZOBACTAM SODIUM
     Indication: Sepsis
     Dosage: 1500 MILLIGRAM, QD
     Route: 042
     Dates: start: 20220130, end: 20220216
  3. PIPERACILLIN SODIUM [Suspect]
     Active Substance: PIPERACILLIN SODIUM
     Indication: Sepsis
     Dosage: 12 GRAM, QD
     Route: 042
     Dates: start: 20220130, end: 20220216

REACTIONS (1)
  - Neutropenia [Not Recovered/Not Resolved]

NARRATIVE: CASE EVENT DATE: 20220214
